FAERS Safety Report 12748239 (Version 1)
Quarter: 2016Q3

REPORT INFORMATION
  Report Type: Spontaneous
  Country: US (occurrence: US)
  Receive Date: 20160915
  Receipt Date: 20160915
  Transmission Date: 20161109
  Serious: No
  Sender: FDA-Public Use
  Company Number: US-BAYER-2016-177834

PATIENT
  Age: 48 Year
  Sex: Female

DRUGS (1)
  1. ALEVE [Suspect]
     Active Substance: NAPROXEN SODIUM
     Indication: TOOTHACHE
     Dosage: 3 TO 4 DF BID
     Route: 048
     Dates: end: 20160909

REACTIONS (5)
  - Abdominal distension [Recovering/Resolving]
  - Overdose [None]
  - Product use issue [None]
  - Discomfort [None]
  - Abdominal pain upper [None]

NARRATIVE: CASE EVENT DATE: 201608
